FAERS Safety Report 23338176 (Version 4)
Quarter: 2024Q1

REPORT INFORMATION
  Report Type: Spontaneous
  Country: US (occurrence: US)
  Receive Date: 20231226
  Receipt Date: 20240216
  Transmission Date: 20240410
  Serious: Yes (Other)
  Sender: FDA-Public Use
  Company Number: US-PFIZER INC-PV202300202357

PATIENT
  Age: 71 Year
  Sex: Female
  Weight: 60.771 kg

DRUGS (1)
  1. PREMARIN [Suspect]
     Active Substance: ESTROGENS, CONJUGATED
     Dosage: UNK

REACTIONS (3)
  - Meniere^s disease [Unknown]
  - Mastoiditis [Unknown]
  - Memory impairment [Unknown]

NARRATIVE: CASE EVENT DATE: 20231212
